FAERS Safety Report 4279406-X (Version None)
Quarter: 2004Q1

REPORT INFORMATION
  Report Type: 
  Country: None (occurrence: None)
  Receive Date: 20040127
  Receipt Date: 20030505
  Transmission Date: 20041129
  Serious: No
  Sender: FDA-Public Use
  Company Number: US-BRISTOL-MYERS SQUIBB COMPANY-12263687

PATIENT
  Sex: Male

DRUGS (2)
  1. DOVONEX [Suspect]
     Route: 061
     Dates: start: 20030303
  2. CAPITROL [Concomitant]

REACTIONS (1)
  - HAIR COLOUR CHANGES [None]
